FAERS Safety Report 6977238 (Version 1)
Quarter: 2020Q3

REPORT INFORMATION
  Report Type: Report from Study
  Country: US (occurrence: US)
  Receive Date: 20090424
  Receipt Date: 20090424
  Transmission Date: 20201105
  Serious: Yes (Hospitalization)
  Sender: FDA-Public Use
  Company Number: US-WYE-H08954809

PATIENT
  Age: 52 Year
  Sex: Female
  Weight: 70.82 kg

DRUGS (8)
  1. EFFEXOR [Concomitant]
     Active Substance: VENLAFAXINE HYDROCHLORIDE
     Indication: HOT FLUSH
     Route: 065
     Dates: start: 2007
  2. DECADRON [Concomitant]
     Active Substance: DEXAMETHASONE
     Indication: BONE PAIN
     Route: 065
     Dates: start: 20090405
  3. INTERFERON ALFA NOS [Suspect]
     Active Substance: INTERFERON ALFA-2A OR INTERFERON ALFA-2B
     Indication: RENAL CELL CARCINOMA
     Dosage: 9 MU 3 TIMES PER WEEK
     Route: 058
     Dates: start: 20090330, end: 20090408
  4. BEVACIZUMAB. [Concomitant]
     Active Substance: BEVACIZUMAB
     Indication: RENAL CELL CARCINOMA
     Route: 042
     Dates: start: 20090330, end: 20090330
  5. IMODIUM [Concomitant]
     Active Substance: LOPERAMIDE HYDROCHLORIDE
     Indication: DIARRHOEA
     Dosage: NOT PROVIDED
     Route: 065
     Dates: start: 20090405
  6. DARVOCET?N 100 [Concomitant]
     Active Substance: ACETAMINOPHEN\PROPOXYPHENE NAPSYLATE
     Indication: BONE PAIN
     Dosage: NOT PROVIDED
     Route: 065
     Dates: start: 20090120
  7. ZOMETA [Concomitant]
     Active Substance: ZOLEDRONIC ACID
     Indication: METASTASES TO BONE
     Route: 042
     Dates: start: 20090219
  8. AMBIEN [Concomitant]
     Active Substance: ZOLPIDEM TARTRATE
     Indication: INSOMNIA
     Dosage: NOT PROVIDED
     Route: 065
     Dates: start: 20090120

REACTIONS (2)
  - Muscular weakness [Not Recovered/Not Resolved]
  - Fatigue [Recovered/Resolved]

NARRATIVE: CASE EVENT DATE: 20090409
